FAERS Safety Report 5815258-1 (Version None)
Quarter: 2008Q3

REPORT INFORMATION
  Report Type: 
  Country: None (occurrence: None)
  Receive Date: 20080718
  Receipt Date: 20080716
  Transmission Date: 20090109
  Serious: Yes (Hospitalization)
  Sender: FDA-Public Use
  Company Number: US-BOEHRINGER INGELHEIM GMBH, GERMANY-2008-BP-09080BP

PATIENT
  Age: 83 Year
  Sex: Female

DRUGS (6)
  1. SPIRIVA [Suspect]
     Indication: CHRONIC OBSTRUCTIVE PULMONARY DISEASE
     Dates: start: 20060401, end: 20080501
  2. ADVAIR DISKUS 100/50 [Suspect]
     Indication: CHRONIC OBSTRUCTIVE PULMONARY DISEASE
  3. VASOTEC [Concomitant]
     Indication: HYPERTENSION
  4. MEVACOR [Concomitant]
     Indication: BLOOD CHOLESTEROL
  5. CELEXA [Concomitant]
     Indication: DEPRESSION
  6. IRON [Concomitant]

REACTIONS (1)
  - DEHYDRATION [None]
